FAERS Safety Report 15520230 (Version 9)
Quarter: 2022Q1

REPORT INFORMATION
  Report Type: Spontaneous
  Country: JP (occurrence: JP)
  Receive Date: 20181017
  Receipt Date: 20220214
  Transmission Date: 20220423
  Serious: Yes (Death, Life-Threatening, Hospitalization, Disabling, Other)
  Sender: FDA-Public Use
  Company Number: PHJP2018JP017873

PATIENT
  Age: 76 Year
  Sex: Female

DRUGS (1)
  1. NEORAL [Suspect]
     Active Substance: CYCLOSPORINE
     Indication: Aplastic anaemia
     Dosage: 200 MG
     Route: 048
     Dates: start: 20180807

REACTIONS (10)
  - Brain abscess [Fatal]
  - Altered state of consciousness [Fatal]
  - Depressed level of consciousness [Fatal]
  - Blood pressure decreased [Fatal]
  - Aplastic anaemia [Fatal]
  - Disease progression [Fatal]
  - Cerebral infarction [Recovering/Resolving]
  - Cerebral haemorrhage [Recovering/Resolving]
  - Fungal infection [Unknown]
  - Product use in unapproved indication [Unknown]

NARRATIVE: CASE EVENT DATE: 20180807
